FAERS Safety Report 7732347-5 (Version None)
Quarter: 2011Q3

REPORT INFORMATION
  Report Type: 
  Country: None (occurrence: None)
  Receive Date: 20110906
  Receipt Date: 20110831
  Transmission Date: 20111222
  Serious: Yes (Hospitalization)
  Sender: FDA-Public Use
  Company Number: FR-PFIZER INC-2011191587

PATIENT
  Age: 76 Year
  Sex: Male

DRUGS (12)
  1. GANCICLOVIR SODIUM [Suspect]
     Indication: CYTOMEGALOVIRUS COLITIS
     Dosage: 300 MG, EVERY 12 HOURS
     Route: 042
     Dates: start: 20110321, end: 20110401
  2. BACTRIM [Suspect]
     Indication: PNEUMOCYSTIS JIROVECI PNEUMONIA
     Dosage: UNK
     Route: 042
     Dates: start: 20110328, end: 20110409
  3. PREVISCAN [Concomitant]
     Indication: ATRIAL FIBRILLATION
  4. PIPERACILLIN AND TAZOBACTAM [Suspect]
     Indication: PNEUMOCYSTIS JIROVECI PNEUMONIA
     Dosage: UNK
     Route: 042
     Dates: start: 20110330, end: 20110407
  5. VANCOMYCIN [Suspect]
     Indication: BLOOD CULTURE POSITIVE
     Dosage: SINGLE ADMINISTRATION
     Route: 042
     Dates: start: 20110325, end: 20110325
  6. METRONIDAZOLE [Suspect]
     Indication: BACTERIAL INFECTION
     Dosage: UNK
     Route: 042
     Dates: start: 20110326, end: 20110330
  7. DIGOXIN [Concomitant]
     Indication: ATRIAL FIBRILLATION
  8. BISOPROLOL [Concomitant]
     Indication: ATRIAL FIBRILLATION
  9. CEFTRIAXON [Suspect]
     Indication: BLOOD CULTURE POSITIVE
     Dosage: UNK
     Route: 042
     Dates: start: 20110325, end: 20110329
  10. ROVAMYCINE [Suspect]
     Indication: ANTIFUNGAL PROPHYLAXIS
     Dosage: UNK
     Route: 042
     Dates: start: 20110328, end: 20110329
  11. FLUCONAZOLE [Suspect]
     Indication: ORAL FUNGAL INFECTION
     Dosage: UNK
     Route: 048
     Dates: start: 20110323, end: 20110328
  12. GENTAMICIN [Suspect]
     Indication: BLOOD CULTURE POSITIVE
     Dosage: UNK
     Route: 042
     Dates: start: 20110325, end: 20110327

REACTIONS (1)
  - BONE MARROW DISORDER [None]
